FAERS Safety Report 8478919-4 (Version None)
Quarter: 2012Q2

REPORT INFORMATION
  Report Type: 
  Country: None (occurrence: None)
  Receive Date: 20120629
  Receipt Date: 20120618
  Transmission Date: 20120825
  Serious: Yes (Hospitalization)
  Sender: FDA-Public Use
  Company Number: IT-ROCHE-1078269

PATIENT
  Sex: Male

DRUGS (2)
  1. NAPROXEN SODIUM [Suspect]
     Indication: NECK PAIN
     Dosage: (}220 MG)
     Route: 048
     Dates: start: 20120522, end: 20120523
  2. TIZANIDINE HYDROCHLORIDE [Suspect]
     Indication: NECK PAIN
     Route: 048
     Dates: start: 20120522, end: 20120523

REACTIONS (4)
  - SOMNOLENCE [None]
  - RASH [None]
  - BACK PAIN [None]
  - URTICARIA [None]
